FAERS Safety Report 25251595 (Version 1)
Quarter: 2025Q2

REPORT INFORMATION
  Report Type: Spontaneous
  Country: US (occurrence: US)
  Receive Date: 20250429
  Receipt Date: 20250429
  Transmission Date: 20250717
  Serious: Yes (Life-Threatening, Hospitalization, Other)
  Sender: EXELA PHARMA SCIENCES
  Company Number: US-EXELAPHARMA-2025EXLA00056

PATIENT
  Age: 13 Year
  Sex: Male

DRUGS (2)
  1. FENTANYL CITRATE [Suspect]
     Active Substance: FENTANYL CITRATE
     Indication: Product used for unknown indication
  2. DRONABINOL [Suspect]
     Active Substance: DRONABINOL
     Indication: Product used for unknown indication

REACTIONS (8)
  - Encephalopathy [Recovering/Resolving]
  - Brain hypoxia [Recovering/Resolving]
  - Acute kidney injury [Unknown]
  - Compartment syndrome [Unknown]
  - Rhabdomyolysis [Unknown]
  - Hepatic enzyme increased [Unknown]
  - Respiratory failure [Unknown]
  - Drug abuse [Unknown]
